FAERS Safety Report 8285205-4 (Version None)
Quarter: 2012Q2

REPORT INFORMATION
  Report Type: 
  Country: None (occurrence: None)
  Receive Date: 20120413
  Receipt Date: 20120207
  Transmission Date: 20120825
  Serious: No
  Sender: FDA-Public Use
  Company Number: US-ASTRAZENECA-2010SE22446

PATIENT
  Age: 37 Year
  Sex: Male
  Weight: 113.4 kg

DRUGS (11)
  1. HALDOL [Concomitant]
  2. PRILOSEC OTC [Suspect]
     Route: 048
  3. RANITIDINE [Concomitant]
  4. NEXIUM [Concomitant]
  5. SEROQUEL XR [Suspect]
     Indication: BIPOLAR DISORDER
     Dosage: 100 MG IN MORNING, 100 MG AT 2 PM AND 400 MG AT BEDTIME
     Route: 048
     Dates: start: 20081201
  6. AGAMENT [Concomitant]
  7. ESOMEPRAZOLE MAGNESIUM [Suspect]
     Route: 048
  8. SEROQUEL XR [Suspect]
     Route: 048
  9. DEPAKOTE [Concomitant]
  10. SEROQUEL XR [Suspect]
     Indication: SCHIZOPHRENIA, PARANOID TYPE
     Dosage: 100 MG IN MORNING, 100 MG AT 2 PM AND 400 MG AT BEDTIME
     Route: 048
     Dates: start: 20081201
  11. SEROQUEL XR [Suspect]
     Route: 048

REACTIONS (6)
  - INSOMNIA [None]
  - DRUG INEFFECTIVE [None]
  - HALLUCINATION, VISUAL [None]
  - DRUG DOSE OMISSION [None]
  - DELUSION [None]
  - ASOCIAL BEHAVIOUR [None]
